FAERS Safety Report 13565241 (Version 2)
Quarter: 2017Q2

REPORT INFORMATION
  Report Type: Spontaneous
  Country: JP (occurrence: JP)
  Receive Date: 20170519
  Receipt Date: 20170621
  Transmission Date: 20170830
  Serious: Yes (Other)
  Sender: FDA-Public Use
  Company Number: JP-GILEAD-2017-0272611

PATIENT
  Age: 79 Year
  Sex: Female

DRUGS (7)
  1. MICARDIS [Concomitant]
     Active Substance: TELMISARTAN
     Dosage: UNK
  2. THYRADIN [Concomitant]
     Active Substance: LEVOTHYROXINE
     Dosage: UNK
  3. SPIRONOLACTONE. [Concomitant]
     Active Substance: SPIRONOLACTONE
     Dosage: UNK
  4. HARVONI [Suspect]
     Active Substance: LEDIPASVIR\SOFOSBUVIR
     Indication: CHRONIC HEPATITIS C
     Dosage: 1 DF, UNK
     Route: 048
     Dates: start: 20151001, end: 20151224
  5. TRAZENTA [Concomitant]
     Active Substance: LINAGLIPTIN
     Dosage: UNK
  6. AMLODIPINE                         /00972402/ [Concomitant]
     Active Substance: AMLODIPINE BESYLATE
     Dosage: UNK
  7. SEIBULE [Concomitant]
     Active Substance: MIGLITOL
     Dosage: UNK

REACTIONS (1)
  - Hepatocellular carcinoma [Unknown]

NARRATIVE: CASE EVENT DATE: 20161025
